FAERS Safety Report 10501157 (Version 1)
Quarter: 2014Q4

REPORT INFORMATION
  Report Type: Spontaneous
  Country: US (occurrence: US)
  Receive Date: 20141007
  Receipt Date: 20141007
  Transmission Date: 20150528
  Serious: Yes (Hospitalization)
  Sender: FDA-Public Use
  Company Number: US-UCBSA-2014013018

PATIENT
  Age: 72 Year
  Sex: Female

DRUGS (1)
  1. CIMZIA [Suspect]
     Active Substance: CERTOLIZUMAB PEGOL
     Indication: PRODUCT USED FOR UNKNOWN INDICATION
     Dosage: 400 MG, EV 4 WEEKS, STRENGTH: 200 MG
     Route: 058
     Dates: start: 20130925, end: 20140801

REACTIONS (2)
  - Dyspnoea [Unknown]
  - Lung disorder [Unknown]

NARRATIVE: CASE EVENT DATE: 20140730
